FAERS Safety Report 9165708 (Version 1)
Quarter: 2013Q1

REPORT INFORMATION
  Report Type: Spontaneous
  Country: US (occurrence: None)
  Receive Date: 20130314
  Receipt Date: 20130314
  Transmission Date: 20140127
  Serious: Yes (Hospitalization, Disabling)
  Sender: FDA-Public Use
  Company Number: None

PATIENT
  Age: 69 Year
  Sex: Female
  Weight: 99.79 kg

DRUGS (2)
  1. ATROMYCIN [Suspect]
     Indication: VIRAL INFECTION
     Dosage: Z PAC, 1 PKT
     Dates: start: 20121115, end: 20121207
  2. ATROMYCIN [Suspect]
     Indication: BRONCHITIS
     Dosage: Z PAC, 1 PKT
     Dates: start: 20121115, end: 20121207

REACTIONS (5)
  - Pruritus generalised [None]
  - Vulvovaginal discomfort [None]
  - Anorectal disorder [None]
  - Breast disorder [None]
  - Skin disorder [None]
